FAERS Safety Report 25700390 (Version 2)
Quarter: 2025Q3

REPORT INFORMATION
  Report Type: Spontaneous
  Country: CN (occurrence: CN)
  Receive Date: 20250819
  Receipt Date: 20250903
  Transmission Date: 20251021
  Serious: Yes (Life-Threatening, Hospitalization)
  Sender: ACCORD
  Company Number: CN-Accord-500042

PATIENT
  Age: 55 Year
  Sex: Male

DRUGS (2)
  1. CLOZAPINE [Suspect]
     Active Substance: CLOZAPINE
     Route: 048
  2. CLOZAPINE [Suspect]
     Active Substance: CLOZAPINE
     Route: 048

REACTIONS (11)
  - Rhabdomyolysis [Recovered/Resolved]
  - Toxicity to various agents [Unknown]
  - Atrioventricular block complete [Recovered/Resolved]
  - Respiratory failure [Recovered/Resolved]
  - Coma [Recovered/Resolved]
  - Pneumonia [Recovered/Resolved]
  - Cerebral ischaemia [Recovered/Resolved]
  - Intentional overdose [Unknown]
  - Left ventricular dilatation [Recovered/Resolved]
  - Mitral valve incompetence [Recovered/Resolved]
  - Tricuspid valve incompetence [Recovered/Resolved]

NARRATIVE: CASE EVENT DATE: 20240201
